FAERS Safety Report 9253261 (Version 1)
Quarter: 2013Q2

REPORT INFORMATION
  Report Type: Spontaneous
  Country: FR (occurrence: FR)
  Receive Date: 20130424
  Receipt Date: 20130424
  Transmission Date: 20140414
  Serious: Yes (Death)
  Sender: FDA-Public Use
  Company Number: FR-ELI_LILLY_AND_COMPANY-FR201304006732

PATIENT
  Sex: Male

DRUGS (2)
  1. ALIMTA [Suspect]
     Indication: LUNG NEOPLASM MALIGNANT
  2. ENZYME INHIBITORS [Concomitant]
     Indication: LUNG NEOPLASM MALIGNANT

REACTIONS (2)
  - Bone marrow failure [Fatal]
  - Off label use [Unknown]
